FAERS Safety Report 21527620 (Version 1)
Quarter: 2022Q4

REPORT INFORMATION
  Report Type: Report from Study
  Country: US (occurrence: US)
  Receive Date: 20221031
  Receipt Date: 20221031
  Transmission Date: 20230112
  Serious: Yes (Hospitalization, Other)
  Sender: FDA-Public Use
  Company Number: US-BRISTOL-MYERS SQUIBB COMPANY-2022-126381

PATIENT
  Age: 65 Year
  Sex: Female
  Weight: 107.95 kg

DRUGS (1)
  1. ELIQUIS [Suspect]
     Active Substance: APIXABAN
     Indication: Cerebrovascular accident prophylaxis
     Route: 048
     Dates: start: 2020

REACTIONS (5)
  - Dermatitis contact [Unknown]
  - Pneumonia [Unknown]
  - Renal failure [Unknown]
  - Cardiac failure congestive [Unknown]
  - Weight decreased [Unknown]
